FAERS Safety Report 10420757 (Version 1)
Quarter: 2014Q3

REPORT INFORMATION
  Report Type: Spontaneous
  Country: US (occurrence: None)
  Receive Date: 20140709
  Receipt Date: 20140709
  Transmission Date: 20150326
  Serious: Yes (Hospitalization)
  Sender: FDA-Public Use
  Company Number: PHHY2014US030885

PATIENT
  Age: 11 Year
  Sex: Female

DRUGS (2)
  1. DASATINIB (DASATINIB) [Suspect]
     Active Substance: DASATINIB
     Indication: LEUKAEMIA
     Dates: end: 20131009
  2. GLEEVEC [Suspect]
     Active Substance: IMATINIB MESYLATE
     Dates: start: 20131012

REACTIONS (7)
  - Tachycardia [None]
  - Pyrexia [None]
  - Abdominal pain [None]
  - Vomiting [None]
  - Enteritis [None]
  - Diarrhoea [None]
  - Haematochezia [None]
